FAERS Safety Report 16799338 (Version 3)
Quarter: 2019Q4

REPORT INFORMATION
  Report Type: Spontaneous
  Country: ES (occurrence: ES)
  Receive Date: 20190912
  Receipt Date: 20191220
  Transmission Date: 20200122
  Serious: Yes (Hospitalization)
  Sender: FDA-Public Use
  Company Number: ES-MYLANLABS-2019M1084525

PATIENT
  Age: 56 Year
  Sex: Female

DRUGS (4)
  1. PYLERA [Suspect]
     Active Substance: BISMUTH SUBCITRATE POTASSIUM\METRONIDAZOLE\TETRACYCLINE HYDROCHLORIDE
     Indication: HELICOBACTER INFECTION
     Dosage: 12 DOSAGE FORM, QD,3 DF, QID (FOR BREAKFAST, LUNCH, SNACK AND DINNER)
     Route: 048
     Dates: start: 20161005, end: 20161015
  2. BISOPROLOL                         /00802602/ [Concomitant]
     Active Substance: BISOPROLOL
  3. OMEPRAZOLE. [Suspect]
     Active Substance: OMEPRAZOLE
     Indication: HELICOBACTER INFECTION
     Dosage: 40 MG, BID (BEFORE BREAKFAST AND DINNER)
     Route: 048
  4. OLMESARTAN [Concomitant]
     Active Substance: OLMESARTAN

REACTIONS (3)
  - Wrong technique in product usage process [Unknown]
  - Clostridium difficile colitis [Recovered/Resolved]
  - Intentional product misuse [Unknown]
